FAERS Safety Report 15477329 (Version 3)
Quarter: 2018Q4

REPORT INFORMATION
  Report Type: Report from Study
  Country: US (occurrence: US)
  Receive Date: 20181009
  Receipt Date: 20181024
  Transmission Date: 20190205
  Serious: Yes (Hospitalization)
  Sender: FDA-Public Use
  Company Number: US-ROCHE-2194487

PATIENT
  Age: 47 Year
  Sex: Female
  Weight: 84.2 kg

DRUGS (11)
  1. METFORMIN [Concomitant]
     Active Substance: METFORMIN HYDROCHLORIDE
     Route: 048
     Dates: start: 20180213
  2. JANUVIA [Concomitant]
     Active Substance: SITAGLIPTIN PHOSPHATE
     Route: 048
     Dates: start: 20180529
  3. METOPROLOL. [Concomitant]
     Active Substance: METOPROLOL
     Route: 048
     Dates: start: 20180529
  4. GLIPIZIDE. [Concomitant]
     Active Substance: GLIPIZIDE
     Route: 048
     Dates: start: 20180205
  5. POTASSIUM CHLORIDE. [Concomitant]
     Active Substance: POTASSIUM CHLORIDE
     Dosage: 10 OTHER
     Route: 048
     Dates: start: 20180205
  6. HYDROCHLOROTHIAZIDE/TRIAMTERENE [Concomitant]
     Active Substance: HYDROCHLOROTHIAZIDE\TRIAMTERENE
     Route: 048
     Dates: start: 20180213
  7. ATEZOLIZUMAB. [Suspect]
     Active Substance: ATEZOLIZUMAB
     Indication: RENAL CELL CARCINOMA
     Dosage: ON 17/SEP/2018 AT 11:17 HOURS, SHE RECEIVED THE MOST RECENT DOSE OF BLINDED ATEZOLIZUMAB PRIOR TO EV
     Route: 042
     Dates: start: 20180514
  8. PIOGLITAZONE. [Concomitant]
     Active Substance: PIOGLITAZONE
     Route: 048
     Dates: start: 20180205
  9. CHANTIX [Concomitant]
     Active Substance: VARENICLINE TARTRATE
     Route: 048
     Dates: start: 20180213
  10. LANSOPRAZOLE. [Concomitant]
     Active Substance: LANSOPRAZOLE
     Route: 048
     Dates: start: 20180213
  11. ONDANSETRON [Concomitant]
     Active Substance: ONDANSETRON
     Route: 048
     Dates: start: 20180205

REACTIONS (1)
  - Acute left ventricular failure [Recovered/Resolved]

NARRATIVE: CASE EVENT DATE: 20181002
